FAERS Safety Report 14494826 (Version 5)
Quarter: 2018Q1

REPORT INFORMATION
  Report Type: Spontaneous
  Country: US (occurrence: US)
  Receive Date: 20180206
  Receipt Date: 20180221
  Transmission Date: 20180509
  Serious: Yes (Hospitalization, Other)
  Sender: FDA-Public Use
  Company Number: US-PFIZER INC-2018050859

PATIENT
  Age: 59 Year
  Sex: Female
  Weight: 79 kg

DRUGS (11)
  1. PRILOSEC [Suspect]
     Active Substance: OMEPRAZOLE MAGNESIUM
     Indication: GASTROOESOPHAGEAL REFLUX DISEASE
     Dosage: 20 MG, ONE TO TWO TIMES PER DAY
     Route: 048
  2. FLEXERIL [Concomitant]
     Active Substance: CYCLOBENZAPRINE HYDROCHLORIDE
     Dosage: UNK
     Route: 065
  3. ATENOLOL. [Suspect]
     Active Substance: ATENOLOL
     Indication: BLOOD PRESSURE ABNORMAL
     Dosage: 25 MG, 2X/DAY
     Route: 065
  4. LIDOCAINE HCL [Suspect]
     Active Substance: LIDOCAINE HYDROCHLORIDE
     Indication: PAIN
     Dosage: UNK
     Route: 065
  5. PRILOSEC [Suspect]
     Active Substance: OMEPRAZOLE MAGNESIUM
     Dosage: 20 MG DAILY (GENERIC OMEPRAZOLE)
     Route: 065
  6. NEXIUM 24HR [Suspect]
     Active Substance: ESOMEPRAZOLE MAGNESIUM
     Indication: GASTROOESOPHAGEAL REFLUX DISEASE
     Dosage: UNK
     Route: 048
  7. PRILOSEC OTC [Suspect]
     Active Substance: OMEPRAZOLE MAGNESIUM
     Indication: GASTROOESOPHAGEAL REFLUX DISEASE
     Dosage: 20 MG, 1X/DAY
     Route: 048
  8. TAGAMET [Suspect]
     Active Substance: CIMETIDINE
     Dosage: UNK
     Route: 065
  9. OXYCODONE [Concomitant]
     Active Substance: OXYCODONE
     Dosage: UNK
     Route: 065
  10. PERCOCET [Concomitant]
     Active Substance: ACETAMINOPHEN\OXYCODONE HYDROCHLORIDE
     Dosage: UNK
     Route: 065
  11. XANAX [Concomitant]
     Active Substance: ALPRAZOLAM
     Dosage: UNK UNK, DAILY
     Route: 065

REACTIONS (30)
  - Dyspepsia [Not Recovered/Not Resolved]
  - Tremor [Not Recovered/Not Resolved]
  - Drug ineffective [Unknown]
  - Foot fracture [Unknown]
  - Fall [Unknown]
  - Diaphragmatic rupture [Unknown]
  - Intervertebral disc protrusion [Unknown]
  - Vein disorder [Unknown]
  - Deep vein thrombosis [Unknown]
  - Diaphragmatic disorder [Unknown]
  - Hypoaesthesia [Unknown]
  - Nightmare [Unknown]
  - Laceration [Unknown]
  - Weight decreased [Unknown]
  - Peripheral swelling [Unknown]
  - Contusion [Unknown]
  - Fibromyalgia [Unknown]
  - Tendon disorder [Unknown]
  - Meniscus injury [Unknown]
  - Arthropathy [Unknown]
  - Intentional product misuse [Recovered/Resolved]
  - Necrosis [Unknown]
  - Exostosis [Unknown]
  - Nephrolithiasis [Unknown]
  - Tooth loss [Unknown]
  - Plantar fasciitis [Unknown]
  - Hyperkeratosis [Unknown]
  - Medication residue present [Unknown]
  - Vomiting [Not Recovered/Not Resolved]
  - Tooth injury [Unknown]

NARRATIVE: CASE EVENT DATE: 201702
